FAERS Safety Report 6772344-X (Version None)
Quarter: 2010Q2

REPORT INFORMATION
  Report Type: 
  Country: None (occurrence: None)
  Receive Date: 20100616
  Receipt Date: 20090916
  Transmission Date: 20101027
  Serious: No
  Sender: FDA-Public Use
  Company Number: US-ASTRAZENECA-2009SE13537

PATIENT
  Sex: Male

DRUGS (2)
  1. PULMICORT RESPULES [Suspect]
     Indication: ASTHMA
     Dosage: DRINK THE PULMICORT RESPULES THREE TIMES A DAY
     Route: 055
     Dates: start: 20090901
  2. PULMICORT RESPULES [Suspect]
     Indication: NEOPLASM MALIGNANT
     Dosage: DRINK THE PULMICORT RESPULES THREE TIMES A DAY
     Route: 055
     Dates: start: 20090901

REACTIONS (1)
  - INCORRECT ROUTE OF DRUG ADMINISTRATION [None]
